FAERS Safety Report 6212084-9 (Version None)
Quarter: 2009Q2

REPORT INFORMATION
  Report Type: 
  Country: None (occurrence: None)
  Receive Date: 20090602
  Receipt Date: 20090519
  Transmission Date: 20091009
  Serious: Yes (Disabling)
  Sender: FDA-Public Use
  Company Number: PHHY2009CO19421

PATIENT
  Sex: Male

DRUGS (1)
  1. SANDOSTATIN [Suspect]
     Indication: NEUROENDOCRINE TUMOUR
     Dosage: 0.1 MG/DAY
     Route: 058
     Dates: start: 20090301, end: 20090301

REACTIONS (5)
  - ABDOMINAL PAIN [None]
  - BEDRIDDEN [None]
  - DIARRHOEA [None]
  - PAIN [None]
  - TACHYCARDIA [None]
